FAERS Safety Report 21446641 (Version 1)
Quarter: 2022Q4

REPORT INFORMATION
  Report Type: Report from Study
  Country: GB (occurrence: GB)
  Receive Date: 20221012
  Receipt Date: 20221012
  Transmission Date: 20230113
  Serious: Yes (Life-Threatening, Other)
  Sender: FDA-Public Use
  Company Number: GB-NOVARTISPH-NVSC2022GB229046

PATIENT
  Sex: Male

DRUGS (1)
  1. ERELZI [Suspect]
     Active Substance: ETANERCEPT-SZZS
     Indication: Ankylosing spondylitis
     Dosage: 50 MG, QW (4 PRE-FILLED DISPOSABLE INJECTION), DELIVERY START DATE: 15 JUL 2022
     Route: 058

REACTIONS (8)
  - Suicidal ideation [Unknown]
  - Pain [Unknown]
  - Crying [Unknown]
  - Neck pain [Unknown]
  - Back pain [Unknown]
  - Headache [Unknown]
  - COVID-19 [Unknown]
  - Product dose omission issue [Unknown]
